FAERS Safety Report 6372033-X (Version None)
Quarter: 2009Q3

REPORT INFORMATION
  Report Type: 
  Country: None (occurrence: None)
  Receive Date: 20090917
  Receipt Date: 20090904
  Transmission Date: 20100115
  Serious: Yes (Death)
  Sender: FDA-Public Use
  Company Number: ADR19262009

PATIENT
  Age: 78 Year
  Sex: Female

DRUGS (10)
  1. SALBUTAMOL (MFR: UNKNOWN) [Suspect]
     Dosage: 100 UG;RESPIRATORY USE
     Route: 055
  2. AQUEOUS CREAM [Concomitant]
  3. DEXAMETHASONE 4MG TAB [Concomitant]
  4. LACTULOSE [Concomitant]
  5. LANSOPRAZOLE 15 MG [Concomitant]
  6. PARACETAMOL [Concomitant]
  7. QUININE SULPHATE 300 MG [Concomitant]
  8. SENNA [Concomitant]
  9. SERETIDE [Concomitant]
  10. SPIRIVA 18 MICROGRAM INHALATION POWDER, HARD CAPSULE [Concomitant]

REACTIONS (1)
  - NON-HODGKIN'S LYMPHOMA [None]
